FAERS Safety Report 16656276 (Version 1)
Quarter: 2019Q3

REPORT INFORMATION
  Report Type: Spontaneous
  Country: US (occurrence: US)
  Receive Date: 20190801
  Receipt Date: 20190801
  Transmission Date: 20191004
  Serious: No
  Sender: FDA-Public Use
  Company Number: US-PACIRA-201400125

PATIENT
  Age: 57 Year
  Sex: Male
  Weight: 96.4 kg

DRUGS (3)
  1. EXPAREL [Suspect]
     Active Substance: BUPIVACAINE
     Indication: POSTOPERATIVE ANALGESIA
     Dosage: UNK UNK, UNK, FREQUENCY : UNK
     Route: 065
     Dates: start: 20141103, end: 20141103
  2. FAMOTIDINE. [Concomitant]
     Active Substance: FAMOTIDINE
     Indication: PRODUCT USED FOR UNKNOWN INDICATION
     Dosage: 20 MG, Q12H, FREQUENCY : Q12H
     Route: 042
     Dates: start: 20141103
  3. DILAUDID [Concomitant]
     Active Substance: HYDROMORPHONE HYDROCHLORIDE
     Indication: PAIN
     Dosage: 0.5 MG, PRN (^Q 5 MIN PRN^), FREQUENCY : PRN
     Route: 042
     Dates: start: 20141103

REACTIONS (3)
  - Urticaria [Recovered/Resolved]
  - Skin reaction [Recovered/Resolved]
  - Erythema [Recovered/Resolved]

NARRATIVE: CASE EVENT DATE: 20141103
